FAERS Safety Report 13057800 (Version 1)
Quarter: 2016Q4

REPORT INFORMATION
  Report Type: Spontaneous
  Country: IT (occurrence: IT)
  Receive Date: 20161223
  Receipt Date: 20161223
  Transmission Date: 20170207
  Serious: Yes (Hospitalization)
  Sender: FDA-Public Use
  Company Number: IT-AUROBINDO-AUR-APL-2016-15689

PATIENT
  Age: 80 Year
  Sex: Female

DRUGS (5)
  1. QUETIAPINE. [Suspect]
     Active Substance: QUETIAPINE
     Indication: PRODUCT USED FOR UNKNOWN INDICATION
     Dosage: 50 MG, DAILY
     Route: 048
     Dates: start: 20160520, end: 20161130
  2. DIUREMID /00032601/ [Suspect]
     Active Substance: FUROSEMIDE
     Indication: HYPERTENSION
     Dosage: 1 DF, DAILY
     Route: 048
     Dates: start: 20091130, end: 20161130
  3. SELOKEN                            /00376902/ [Suspect]
     Active Substance: METOPROLOL TARTRATE
     Indication: PRODUCT USED FOR UNKNOWN INDICATION
     Dosage: 200 MG, DAILY
     Route: 048
     Dates: start: 20160520, end: 20161130
  4. MADOPAR [Concomitant]
     Active Substance: BENSERAZIDE HYDROCHLORIDE\LEVODOPA
     Indication: PRODUCT USED FOR UNKNOWN INDICATION
     Route: 065
  5. CARDIRENE [Concomitant]
     Active Substance: ASPIRIN DL-LYSINE
     Indication: PRODUCT USED FOR UNKNOWN INDICATION
     Route: 065

REACTIONS (4)
  - Hypokalaemia [Recovered/Resolved]
  - Long QT syndrome [Recovered/Resolved]
  - Hypotension [Recovered/Resolved]
  - Bradyarrhythmia [Recovered/Resolved]

NARRATIVE: CASE EVENT DATE: 20161130
